FAERS Safety Report 7520187-1 (Version None)
Quarter: 2011Q2

REPORT INFORMATION
  Report Type: 
  Country: None (occurrence: None)
  Receive Date: 20110602
  Receipt Date: 20110201
  Transmission Date: 20111010
  Serious: No
  Sender: FDA-Public Use
  Company Number: US-BAYER-2011-014594

PATIENT
  Age: 49 Year
  Sex: Female
  Weight: 105.22 kg

DRUGS (12)
  1. ALEVE (CAPLET) [Suspect]
     Indication: ANALGESIC THERAPY
     Dosage: 2 DF, QD
     Route: 048
  2. FLEXERIL [Concomitant]
     Dosage: 1 DF, QD
     Route: 048
  3. MORPHINE [Concomitant]
     Dosage: 1 DF, QID
     Route: 048
  4. SIMVASTATIN [Concomitant]
     Dosage: 1 DF, QD
     Route: 048
  5. XANAX [Concomitant]
     Dosage: 1 DF, QD
     Route: 048
  6. MORPHINE [Concomitant]
     Indication: BACK PAIN
     Dosage: UNK
  7. LACTULOSE [Concomitant]
     Dosage: UNK UNK, PRN
     Route: 048
  8. PHILLIPS' LAXATIVE DIETARY SUPPLEMENT [Suspect]
     Indication: CONSTIPATION
     Dosage: 4 DF, UNK, BOTTLE COUNT 55S
     Route: 048
     Dates: start: 20110118, end: 20110118
  9. LANTUS [Concomitant]
     Dosage: 1 IU, QD
  10. AVAPRO [Concomitant]
     Dosage: 1 DF, QD
     Route: 048
  11. GABAPENTIN [Concomitant]
     Dosage: 1 DF, QID
     Route: 048
  12. PHILLIPS' LAXATIVE DIETARY SUPPLEMENT [Suspect]
     Indication: LAXATIVE SUPPORTIVE CARE

REACTIONS (2)
  - NO ADVERSE EVENT [None]
  - CONSTIPATION [None]
